FAERS Safety Report 7332486-7 (Version None)
Quarter: 2011Q1

REPORT INFORMATION
  Report Type: 
  Country: None (occurrence: None)
  Receive Date: 20110304
  Receipt Date: 20110223
  Transmission Date: 20110831
  Serious: Yes (Hospitalization, Disabling, Other)
  Sender: FDA-Public Use
  Company Number: US-ELI_LILLY_AND_COMPANY-US201102006926

PATIENT
  Age: 49 Year
  Sex: Female

DRUGS (3)
  1. HUMALOG [Suspect]
     Indication: DIABETES MELLITUS
     Dosage: UNK, AS NEEDED
     Route: 065
     Dates: start: 20010101
  2. HUMALOG [Suspect]
     Dosage: UNK, AS NEEDED
     Route: 065
     Dates: start: 20010101
  3. LANTUS [Concomitant]
     Indication: DIABETES MELLITUS
     Dosage: 40U TO 50U, EACH EVENING

REACTIONS (7)
  - EXPIRED DRUG ADMINISTERED [None]
  - ARTERIAL BYPASS OPERATION [None]
  - INCISIONAL DRAINAGE [None]
  - EYE HAEMORRHAGE [None]
  - OEDEMA PERIPHERAL [None]
  - BLINDNESS [None]
  - BLOOD GLUCOSE INCREASED [None]
